FAERS Safety Report 4576277-9 (Version None)
Quarter: 2005Q1

REPORT INFORMATION
  Report Type: 
  Country: None (occurrence: None)
  Receive Date: 20050119
  Receipt Date: 20041005
  Transmission Date: 20050727
  Serious: Yes (Hospitalization)
  Sender: FDA-Public Use
  Company Number: A03200301086

PATIENT
  Age: 75 Year
  Sex: Female

DRUGS (6)
  1. PLAVIX [Suspect]
     Indication: CORONARY ANGIOPLASTY
     Dosage: 75 MG QD - ORAL
     Route: 048
     Dates: start: 20011208, end: 20030502
  2. PLAVIX [Suspect]
     Indication: MYOCARDIAL INFARCTION
     Dosage: 75 MG QD - ORAL
     Route: 048
     Dates: start: 20011208, end: 20030502
  3. ASPIRIN [Suspect]
     Indication: CORONARY ANGIOPLASTY
     Dosage: 81 MG QD - ORAL; A FEW YEARS
     Route: 048
     Dates: end: 20030502
  4. ASPIRIN [Suspect]
     Indication: MYOCARDIAL INFARCTION
     Dosage: 81 MG QD - ORAL; A FEW YEARS
     Route: 048
     Dates: end: 20030502
  5. AMLODIPINE BESYLATE [Concomitant]
  6. METOPROLOL SUCCINATE [Concomitant]

REACTIONS (2)
  - DRUG INTERACTION [None]
  - EPISTAXIS [None]
